FAERS Safety Report 21615760 (Version 1)
Quarter: 2022Q4

REPORT INFORMATION
  Report Type: Spontaneous
  Country: FR (occurrence: FR)
  Receive Date: 20221118
  Receipt Date: 20221118
  Transmission Date: 20230113
  Serious: Yes (Hospitalization)
  Sender: FDA-Public Use
  Company Number: None

PATIENT
  Age: 87 Year
  Sex: Male
  Weight: 60.9 kg

DRUGS (11)
  1. LINEZOLID [Suspect]
     Active Substance: LINEZOLID
     Indication: Pneumonia
     Dosage: 1200 MILLIGRAM DAILY; 1 TAB OF 600MG AT 8 A.M. AND 1 AT 8 P.M, DURATION : 14 DAYS
     Route: 065
     Dates: start: 20220105, end: 20220119
  2. VALACYCLOVIR HYDROCHLORIDE [Suspect]
     Active Substance: VALACYCLOVIR HYDROCHLORIDE
     Indication: Product used for unknown indication
     Dosage: 1000 MILLIGRAM DAILY; 1 TAB OF 500MG AT 8 A.M. AND 1 TAB AT 8 P.M., STRENGTH  : 500 MG, DURATION : 1
     Route: 065
     Dates: start: 20220103, end: 20220113
  3. VITAMINS [Suspect]
     Active Substance: VITAMINS
     Indication: Product used for unknown indication
     Dosage: 50 DROPS AT 10 A.M., DURATION : 30 DAYS
     Route: 065
     Dates: start: 20211214, end: 20220113
  4. VIDAZA [Suspect]
     Active Substance: AZACITIDINE
     Indication: Acute myeloid leukaemia
     Dosage: THERAPY END DATE : NASK
     Route: 065
     Dates: start: 202201
  5. PIPERACILLIN SODIUM\TAZOBACTAM SODIUM [Suspect]
     Active Substance: PIPERACILLIN SODIUM\TAZOBACTAM SODIUM
     Indication: Pneumonia
     Dosage: UNIT DOSE :  16 GRAM, FREQUENCY TIME : 1 DAY, DURATION : 14 DAYS
     Route: 065
     Dates: start: 20220103, end: 20220117
  6. OXAZEPAM [Concomitant]
     Active Substance: OXAZEPAM
     Indication: Product used for unknown indication
     Dosage: 10 MILLIGRAM DAILY; 1 TAB OF 10MG AT BEDTIME, STRENGTH  :  10 MG
  7. FUNGIZONE [Concomitant]
     Active Substance: AMPHOTERICIN B
     Indication: Product used for unknown indication
     Dosage: 3 TIMES A DAY, STRENGTH : 10 PERCENT
  8. PRIMPERAN [Concomitant]
     Active Substance: METOCLOPRAMIDE HYDROCHLORIDE
     Indication: Product used for unknown indication
     Dosage: SCORED TABLET, UNIT DOSE AND STRENGTH : 10 MG
  9. FUROSEMIDE [Concomitant]
     Active Substance: FUROSEMIDE
     Indication: Product used for unknown indication
     Dosage: 1 TABLET OF 40MG IN THE MORNING AND 1/2 TABLET AT NOON (TO BE RE-EVALUATED ACCORDING TO THE STATE OF
  10. POTASSIUM CHLORIDE [Concomitant]
     Active Substance: POTASSIUM CHLORIDE
     Indication: Product used for unknown indication
     Dosage: 2CP IN THE MORNING, 2 AT NOON AND 2 IN THE EVENING (TO BE RE-EVALUATED ACCORDING TO THE IONOGRAM), U
  11. CALCIUM CARBONATE [Concomitant]
     Active Substance: CALCIUM CARBONATE
     Indication: Product used for unknown indication
     Dosage: STRENGTH :1.54 G,  IN SACHET-DOSE, 1 SACHET AT 10 A.M. AND 1 SACHET AT 3 P.M.,

REACTIONS (3)
  - Hepatitis acute [Recovering/Resolving]
  - Hepatic failure [Recovering/Resolving]
  - Diarrhoea [Recovering/Resolving]

NARRATIVE: CASE EVENT DATE: 20220113
